FAERS Safety Report 8733396 (Version 2)
Quarter: 2012Q4

REPORT INFORMATION
  Report Type: Spontaneous
  Country: IT (occurrence: None)
  Receive Date: 20120801
  Receipt Date: 20121009
  Transmission Date: 20130627
  Serious: Yes (Hospitalization)
  Sender: FDA-Public Use
  Company Number: DSA_58626_2012

PATIENT
  Sex: Male

DRUGS (8)
  1. DILTIAZEM [Suspect]
     Indication: PRODUCT USED FOR UNKNOWN INDICATION
     Route: 048
     Dates: start: 20110511, end: 20120307
  2. LANOXIN [Suspect]
     Indication: PRODUCT USED FOR UNKNOWN INDICATION
     Route: 048
     Dates: start: 20110318, end: 20120307
  3. FUROSEMIDE [Concomitant]
  4. REPAGLINIDE [Concomitant]
  5. COUMADIN [Concomitant]
  6. RAMIPRIL [Concomitant]
  7. ALLOPURINOL [Concomitant]
  8. LANTUS [Concomitant]

REACTIONS (9)
  - Abdominal tenderness [None]
  - Asthenia [None]
  - Dyspnoea [None]
  - Bradyarrhythmia [None]
  - Malaise [None]
  - Blood creatinine increased [None]
  - Blood urea increased [None]
  - Cardioactive drug level increased [None]
  - Oedema peripheral [None]
